FAERS Safety Report 9070316 (Version 1)
Quarter: 2013Q1

REPORT INFORMATION
  Report Type: Spontaneous
  Country: US (occurrence: US)
  Receive Date: 20130215
  Receipt Date: 20130215
  Transmission Date: 20140127
  Serious: Yes (Hospitalization)
  Sender: FDA-Public Use
  Company Number: US-BAYER-2013-016409

PATIENT
  Age: 42 Year
  Sex: Female

DRUGS (7)
  1. YASMIN [Suspect]
     Indication: PELVIC PAIN
  2. YASMIN [Suspect]
     Indication: OVARIAN CYST
  3. YASMIN [Suspect]
     Indication: CONTRACEPTION
  4. AMBIEN [Concomitant]
     Dosage: 100 MG, HS
     Route: 048
     Dates: start: 20050915
  5. DIFLUCAN [Concomitant]
     Dosage: 150 MG,1 DOSE FOR 1 DAY
     Route: 048
     Dates: start: 20050915
  6. METROGEL [Concomitant]
     Dosage: 37.5 MG, HS, 1 APPLICATORFUL,1 AT BEDTIME FOR 5 DAYS
     Route: 067
     Dates: start: 20050915
  7. CLINDESSE [Concomitant]
     Dosage: 1 APPLICATORFUL TONIGHT
     Route: 067

REACTIONS (1)
  - Mesenteric vein thrombosis [None]
